FAERS Safety Report 13341181 (Version 1)
Quarter: 2017Q1

REPORT INFORMATION
  Report Type: Spontaneous
  Country: US (occurrence: US)
  Receive Date: 20170316
  Receipt Date: 20170316
  Transmission Date: 20170428
  Serious: No
  Sender: FDA-Public Use
  Company Number: US-009507513-1703USA005651

PATIENT
  Sex: Female
  Weight: 62.59 kg

DRUGS (1)
  1. NEXPLANON [Suspect]
     Active Substance: ETONOGESTREL
     Indication: CONTRACEPTION
     Dosage: 1 LEFT-ARM IMPLANT, EVERY 3 YEARS
     Route: 059
     Dates: start: 20150416

REACTIONS (4)
  - Limb deformity [Unknown]
  - Implant site swelling [Unknown]
  - Implant site pain [Unknown]
  - Medical device site joint movement impairment [Unknown]
